FAERS Safety Report 6269107-0 (Version None)
Quarter: 2009Q3

REPORT INFORMATION
  Report Type: 
  Country: None (occurrence: None)
  Receive Date: 20090715
  Receipt Date: 20090630
  Transmission Date: 20100115
  Serious: Yes (Hospitalization, Other)
  Sender: FDA-Public Use
  Company Number: JP-BAUSCH-2008BL003849

PATIENT
  Age: 43 Year
  Sex: Male

DRUGS (5)
  1. FLUOCINOLONE ACETONIDE [Suspect]
     Indication: UVEITIS
     Route: 047
     Dates: start: 20070209
  2. PREDNISOLONE [Concomitant]
     Route: 048
     Dates: start: 20080626
  3. NEORAL [Concomitant]
     Route: 048
     Dates: start: 20080626
  4. ACTONEL /USA/ [Concomitant]
     Route: 048
  5. MUCOSTA [Concomitant]
     Route: 048

REACTIONS (2)
  - ENDOPHTHALMITIS [None]
  - VITREOUS OPACITIES [None]
